FAERS Safety Report 5265031-0 (Version None)
Quarter: 2007Q1

REPORT INFORMATION
  Report Type: 
  Country: None (occurrence: None)
  Receive Date: 20061121
  Receipt Date: 20061018
  Transmission Date: 20070707
  Serious: No
  Sender: FDA-Public Use
  Company Number: TPA2006A01842

PATIENT
  Sex: Female

DRUGS (2)
  1. ROZEREM [Suspect]
     Indication: INSOMNIA
     Dosage: 8 MG, PER ORAL
     Route: 048
     Dates: start: 20060101, end: 20060101
  2. UNKNOWN ANTIDEPRESSANT (ANTIDEPRESSANTS) [Concomitant]

REACTIONS (1)
  - DEPRESSION [None]
